FAERS Safety Report 6764419-6 (Version None)
Quarter: 2010Q2

REPORT INFORMATION
  Report Type: 
  Country: None (occurrence: None)
  Receive Date: 20100610
  Receipt Date: 20100604
  Transmission Date: 20101027
  Serious: Yes (Hospitalization)
  Sender: FDA-Public Use
  Company Number: US-ABBOTT-10P-163-0649502-00

PATIENT
  Age: 36 Year
  Sex: Female

DRUGS (5)
  1. DIVALPROEX SODIUM [Suspect]
     Indication: CONVULSION
     Route: 048
     Dates: end: 20100101
  2. DEPAKOTE [Suspect]
     Indication: CONVULSION
     Dosage: 3500 MG DAILY
  3. DILANTIN [Suspect]
     Indication: CONVULSION
     Dosage: 375 MG DAILY
  4. DILANTIN [Suspect]
  5. KEPPRA [Concomitant]
     Indication: CONVULSION
     Dosage: 1500 MG DAILY

REACTIONS (2)
  - GINGIVAL SWELLING [None]
  - THERAPEUTIC AGENT TOXICITY [None]
